FAERS Safety Report 7044958-3 (Version None)
Quarter: 2010Q4

REPORT INFORMATION
  Report Type: 
  Country: None (occurrence: None)
  Receive Date: 20101014
  Receipt Date: 20101013
  Transmission Date: 20110411
  Serious: Yes (Life-Threatening, Hospitalization)
  Sender: FDA-Public Use
  Company Number: NL-BRISTOL-MYERS SQUIBB COMPANY-15330731

PATIENT
  Age: 57 Year
  Sex: Male
  Weight: 88 kg

DRUGS (1)
  1. ORENCIA [Suspect]
     Indication: RHEUMATOID ARTHRITIS
     Dosage: WITH A LATENCY OF 2 YEARS AFTER START
     Dates: start: 20080501

REACTIONS (1)
  - PULMONARY EMBOLISM [None]
